FAERS Safety Report 10243456 (Version 2)
Quarter: 2014Q2

REPORT INFORMATION
  Report Type: Spontaneous
  Country: JP (occurrence: JP)
  Receive Date: 20140618
  Receipt Date: 20140618
  Transmission Date: 20141212
  Serious: Yes (Other)
  Sender: FDA-Public Use
  Company Number: PHHY2014JP071058

PATIENT
  Sex: 0

DRUGS (1)
  1. NEORAL [Suspect]
     Dosage: UNK
     Route: 048

REACTIONS (1)
  - VIIth nerve paralysis [Unknown]
